FAERS Safety Report 15575200 (Version 1)
Quarter: 2018Q4

REPORT INFORMATION
  Report Type: Spontaneous
  Country: CA (occurrence: CA)
  Receive Date: 20181101
  Receipt Date: 20181101
  Transmission Date: 20190205
  Serious: Yes (Other)
  Sender: FDA-Public Use
  Company Number: CA-PFIZER INC-2018446520

PATIENT
  Age: 65 Year
  Sex: Female

DRUGS (5)
  1. PERCOCET [OXYCODONE HYDROCHLORIDE;OXYCODONE TEREPHTHALATE;PARACETAMOL] [Concomitant]
     Indication: PAIN
     Dosage: UNK, AS NEEDED
  2. METHOTREXATE SODIUM. [Suspect]
     Active Substance: METHOTREXATE SODIUM
     Dosage: 22.5 MG, WEEKLY (5 TABS AM, 4 TABS PM)
     Route: 058
     Dates: end: 20181024
  3. CELEBREX [Suspect]
     Active Substance: CELECOXIB
     Indication: PAIN
     Dosage: 100 MG, AS NEEDED (1-2 TABS PRN)
     Route: 048
  4. PLAQUENIL SULFATE [Concomitant]
     Active Substance: HYDROXYCHLOROQUINE SULFATE
     Dosage: 400 MG, 1X/DAY
  5. METHOTREXATE. [Concomitant]
     Active Substance: METHOTREXATE
     Dosage: 22.5 MG WEEKLY (5 TABS AM (MORNING), 4 TABS PM (NIGHT))
     Route: 048
     Dates: start: 20181024

REACTIONS (11)
  - Pain [Unknown]
  - Arthropathy [Unknown]
  - Arthritis [Unknown]
  - Weight increased [Unknown]
  - Tendon disorder [Unknown]
  - Sensitivity to weather change [Unknown]
  - Depression [Unknown]
  - Ligament rupture [Unknown]
  - Swelling [Unknown]
  - Movement disorder [Unknown]
  - Limb deformity [Unknown]
